FAERS Safety Report 18556299 (Version 1)
Quarter: 2020Q4

REPORT INFORMATION
  Report Type: Spontaneous
  Country: US (occurrence: US)
  Receive Date: 20201128
  Receipt Date: 20201128
  Transmission Date: 20210114
  Serious: Yes (Hospitalization, Other)
  Sender: FDA-Public Use
  Company Number: US-009507513-2011USA015443

PATIENT
  Age: 87 Year
  Sex: Female
  Weight: 78 kg

DRUGS (4)
  1. PRINIVIL [Suspect]
     Active Substance: LISINOPRIL
     Indication: HYPERTENSION
     Dosage: 5 MILLIGRAM, QD
     Route: 048
     Dates: start: 2011
  2. ARIMIDEX [Suspect]
     Active Substance: ANASTROZOLE
     Indication: BREAST CANCER FEMALE
     Dosage: 1 MILLIGRAM, QD
     Route: 048
     Dates: start: 20040512, end: 200911
  3. ARIMIDEX [Suspect]
     Active Substance: ANASTROZOLE
     Dosage: GENERIC DAILY
     Route: 048
     Dates: start: 201212
  4. METOPROLOL. [Suspect]
     Active Substance: METOPROLOL
     Indication: BLOOD PRESSURE ABNORMAL
     Dosage: UNK
     Route: 048

REACTIONS (45)
  - Amnesia [Unknown]
  - Constipation [Unknown]
  - Insomnia [Not Recovered/Not Resolved]
  - Arthropathy [Not Recovered/Not Resolved]
  - Breast swelling [Not Recovered/Not Resolved]
  - Joint swelling [Unknown]
  - Rash [Unknown]
  - Feeling abnormal [Unknown]
  - Dysphagia [Unknown]
  - Cough [Unknown]
  - Muscular weakness [Unknown]
  - Peripheral coldness [Not Recovered/Not Resolved]
  - Vision blurred [Not Recovered/Not Resolved]
  - Lethargy [Unknown]
  - Arthritis [Unknown]
  - Hypertension [Unknown]
  - Aphasia [Unknown]
  - Oedema peripheral [Unknown]
  - Poor peripheral circulation [Unknown]
  - Headache [Unknown]
  - Dizziness [Not Recovered/Not Resolved]
  - Hyperglycaemia [Unknown]
  - Hypoaesthesia [Not Recovered/Not Resolved]
  - Fatigue [Unknown]
  - Myocardial infarction [Unknown]
  - Gingival discomfort [Not Recovered/Not Resolved]
  - Visual impairment [Not Recovered/Not Resolved]
  - Presyncope [Unknown]
  - Depression [Unknown]
  - Muscle tightness [Not Recovered/Not Resolved]
  - Gingival swelling [Not Recovered/Not Resolved]
  - Bone pain [Unknown]
  - Weight abnormal [Unknown]
  - Malaise [Not Recovered/Not Resolved]
  - Product dose omission issue [Unknown]
  - Cerebrovascular accident [Unknown]
  - Dysphonia [Unknown]
  - Gait disturbance [Not Recovered/Not Resolved]
  - Breast pain [Not Recovered/Not Resolved]
  - Abdominal pain upper [Unknown]
  - Abdominal discomfort [Unknown]
  - Body height decreased [Not Recovered/Not Resolved]
  - Vocal cord dysfunction [Not Recovered/Not Resolved]
  - Diarrhoea [Unknown]
  - Osteoporosis [Unknown]

NARRATIVE: CASE EVENT DATE: 2009
